FAERS Safety Report 16475204 (Version 2)
Quarter: 2019Q2

REPORT INFORMATION
  Report Type: Spontaneous
  Country: US (occurrence: US)
  Receive Date: 20190625
  Receipt Date: 20190627
  Transmission Date: 20190711
  Serious: No
  Sender: FDA-Public Use
  Company Number: US-SA-2019SA163637

PATIENT
  Age: 59 Year
  Sex: Male

DRUGS (2)
  1. TOUJEO [Suspect]
     Active Substance: INSULIN GLARGINE
     Dosage: HALF THIS DOSE NOW
     Route: 065
  2. TOUJEO [Suspect]
     Active Substance: INSULIN GLARGINE
     Indication: TYPE 2 DIABETES MELLITUS
     Dosage: 66 UNITS BEFORE
     Route: 065

REACTIONS (8)
  - Pain in extremity [Unknown]
  - Pruritus [Unknown]
  - Rash generalised [Unknown]
  - Somnolence [Unknown]
  - Inappropriate schedule of product administration [Unknown]
  - Skin disorder [Unknown]
  - Rash [Unknown]
  - Burning sensation [Unknown]
